FAERS Safety Report 16264982 (Version 1)
Quarter: 2019Q2

REPORT INFORMATION
  Report Type: Spontaneous
  Country: US (occurrence: US)
  Receive Date: 20190501
  Receipt Date: 20190501
  Transmission Date: 20190711
  Serious: Yes (Hospitalization)
  Sender: FDA-Public Use
  Company Number: None

PATIENT
  Age: 83 Year
  Sex: Male

DRUGS (1)
  1. DONEPEZIL. [Suspect]
     Active Substance: DONEPEZIL
     Indication: PARKINSONISM
     Dates: start: 20190426, end: 20190430

REACTIONS (3)
  - Adverse event [None]
  - Gait inability [None]
  - Movement disorder [None]

NARRATIVE: CASE EVENT DATE: 20190426
